FAERS Safety Report 15436570 (Version 2)
Quarter: 2018Q4

REPORT INFORMATION
  Report Type: Spontaneous
  Country: JP (occurrence: JP)
  Receive Date: 20180927
  Receipt Date: 20181217
  Transmission Date: 20190204
  Serious: Yes (Hospitalization)
  Sender: FDA-Public Use
  Company Number: JP-PFIZER INC-2018381860

PATIENT
  Age: 53 Year
  Sex: Female

DRUGS (6)
  1. NEXIUM [ESOMEPRAZOLE MAGNESIUM] [Concomitant]
     Dosage: UNK
  2. CALONAL [Concomitant]
     Active Substance: ACETAMINOPHEN
     Indication: PAIN
     Dosage: 1000 MG, AS NEEDED
     Route: 048
     Dates: start: 20180721
  3. ADOFEED [Concomitant]
     Active Substance: FLURBIPROFEN
  4. ROSUVASTATIN. [Concomitant]
     Active Substance: ROSUVASTATIN
  5. LYRICA [Suspect]
     Active Substance: PREGABALIN
     Indication: MUSCULOSKELETAL PAIN
     Dosage: 100 MG, 2X/DAY
     Route: 048
     Dates: start: 20180723, end: 20180724
  6. LYRICA [Suspect]
     Active Substance: PREGABALIN
     Indication: NECK PAIN
     Dosage: 75 MG, UNK
     Route: 048

REACTIONS (3)
  - Lip oedema [Recovered/Resolved]
  - Pharyngeal oedema [Recovered/Resolved]
  - Drug ineffective [Unknown]

NARRATIVE: CASE EVENT DATE: 20180724
